FAERS Safety Report 13940254 (Version 1)
Quarter: 2017Q3

REPORT INFORMATION
  Report Type: Spontaneous
  Country: JP (occurrence: JP)
  Receive Date: 20170906
  Receipt Date: 20170906
  Transmission Date: 20171127
  Serious: Yes (Other)
  Sender: FDA-Public Use
  Company Number: JP-PFIZER INC-2017381155

PATIENT

DRUGS (1)
  1. SOLANAX [Suspect]
     Active Substance: ALPRAZOLAM
     Dosage: UNK
     Route: 048

REACTIONS (5)
  - Somnolence [Unknown]
  - Toxicity to various agents [Unknown]
  - Altered state of consciousness [Unknown]
  - Accidental exposure to product [Unknown]
  - Hypotonia [Unknown]
